FAERS Safety Report 6301996-3 (Version None)
Quarter: 2009Q3

REPORT INFORMATION
  Report Type: 
  Country: None (occurrence: None)
  Receive Date: 20090807
  Receipt Date: 20090729
  Transmission Date: 20100115
  Serious: Yes (Other)
  Sender: FDA-Public Use
  Company Number: US-PFIZER INC-2007022393

PATIENT
  Sex: Female
  Weight: 62.585 kg

DRUGS (9)
  1. LIPITOR [Suspect]
     Indication: BLOOD CHOLESTEROL INCREASED
     Dosage: 10 MG, UNK
     Dates: start: 19900101
  2. LOVAZA [Concomitant]
  3. VITAMINS [Concomitant]
  4. CALCIUM [Concomitant]
  5. ACETYL SALICYLIC ACID [Concomitant]
     Dosage: UNK
  6. OMEPRAZOLE [Concomitant]
     Dosage: UNK
  7. OMEGA-3 FATTY ACIDS [Concomitant]
     Indication: BLOOD TRIGLYCERIDES INCREASED
     Dosage: UNK
  8. FISH OIL [Concomitant]
     Indication: BLOOD TRIGLYCERIDES INCREASED
     Dosage: UNK
  9. CLONAZEPAM [Concomitant]
     Indication: IRRITABLE BOWEL SYNDROME
     Dosage: 1 MG, EVERY NIGHT

REACTIONS (15)
  - AMNESIA [None]
  - BODY HEIGHT DECREASED [None]
  - CHEST PAIN [None]
  - DRUG DOSE OMISSION [None]
  - FIBROMYALGIA [None]
  - HEADACHE [None]
  - HYPERLIPIDAEMIA [None]
  - IRRITABLE BOWEL SYNDROME [None]
  - MENISCUS LESION [None]
  - MYALGIA [None]
  - NECK PAIN [None]
  - OSTEOARTHRITIS [None]
  - SINUSITIS [None]
  - UPPER GASTROINTESTINAL HAEMORRHAGE [None]
  - WEIGHT INCREASED [None]
